FAERS Safety Report 20604504 (Version 1)
Quarter: 2022Q1

REPORT INFORMATION
  Report Type: Spontaneous
  Country: CN (occurrence: CN)
  Receive Date: 20220316
  Receipt Date: 20220316
  Transmission Date: 20220423
  Serious: Yes (Hospitalization, Other)
  Sender: FDA-Public Use
  Company Number: CN-PRINSTON PHARMACEUTICAL INC.-2022PRN00084

PATIENT
  Age: 54 Year
  Sex: Male

DRUGS (2)
  1. ENTECAVIR [Suspect]
     Active Substance: ENTECAVIR
     Indication: Hepatitis B e antigen
     Dosage: 0.5 MG, 1X/DAY
     Route: 065
     Dates: start: 201104, end: 202007
  2. ENTECAVIR [Suspect]
     Active Substance: ENTECAVIR
     Indication: Chronic hepatitis B

REACTIONS (1)
  - Mitochondrial myopathy [Recovering/Resolving]
